FAERS Safety Report 5738890-2 (Version None)
Quarter: 2008Q2

REPORT INFORMATION
  Report Type: 
  Country: None (occurrence: None)
  Receive Date: 20080515
  Receipt Date: 20080507
  Transmission Date: 20081010
  Serious: Yes (Other)
  Sender: FDA-Public Use
  Company Number: PHHY2008JP07476

PATIENT
  Age: 69 Year
  Sex: Male

DRUGS (2)
  1. MIGLITOL [Concomitant]
     Route: 048
     Dates: start: 20080410
  2. LOCHOL [Suspect]
     Dosage: 20 MG, QD
     Route: 048
     Dates: start: 20080414, end: 20080504

REACTIONS (3)
  - BLOOD CHOLESTEROL DECREASED [None]
  - BLOOD PRESSURE DECREASED [None]
  - DIZZINESS [None]
